FAERS Safety Report 6043218-7 (Version None)
Quarter: 2009Q1

REPORT INFORMATION
  Report Type: 
  Country: None (occurrence: None)
  Receive Date: 20090119
  Receipt Date: 20090114
  Transmission Date: 20090719
  Serious: Yes (Other)
  Sender: FDA-Public Use
  Company Number: US-JNJCH-2009001259

PATIENT
  Sex: Female
  Weight: 20 kg

DRUGS (1)
  1. ZYRTEC HIVES RELIEF [Suspect]
     Indication: URTICARIA
     Dosage: TEXT:ONE TEASPOON ONCE A DAY
     Route: 048

REACTIONS (4)
  - GROWTH RETARDATION [None]
  - INCORRECT DRUG ADMINISTRATION DURATION [None]
  - UNDERWEIGHT [None]
  - WRONG DRUG ADMINISTERED [None]
